FAERS Safety Report 19925596 (Version 3)
Quarter: 2024Q1

REPORT INFORMATION
  Report Type: Spontaneous
  Country: JP (occurrence: None)
  Receive Date: 20211006
  Receipt Date: 20240112
  Transmission Date: 20240410
  Serious: Yes (Hospitalization, Other)
  Sender: FDA-Public Use
  Company Number: 2021A754540

PATIENT
  Age: 77 Year
  Sex: Male
  Weight: 60 kg

DRUGS (2)
  1. TAGRISSO [Suspect]
     Active Substance: OSIMERTINIB
     Indication: Non-small cell lung cancer
     Route: 048
  2. TAGRISSO [Suspect]
     Active Substance: OSIMERTINIB
     Indication: Non-small cell lung cancer
     Route: 048

REACTIONS (8)
  - Diabetic nephropathy [Unknown]
  - Renal tubular disorder [Unknown]
  - Glomerulonephritis acute [Recovering/Resolving]
  - Focal segmental glomerulosclerosis [Unknown]
  - Thrombosis [Unknown]
  - Emphysema [Unknown]
  - Lymphadenopathy [Unknown]
  - Pleural effusion [Unknown]
